FAERS Safety Report 19574808 (Version 4)
Quarter: 2022Q2

REPORT INFORMATION
  Report Type: Report from Study
  Country: US (occurrence: US)
  Receive Date: 20210719
  Receipt Date: 20220411
  Transmission Date: 20220720
  Serious: Yes (Hospitalization)
  Sender: FDA-Public Use
  Company Number: US-NOVARTISTESTPH-NVSC2021US152681

PATIENT
  Age: 50 Year
  Sex: Female

DRUGS (2)
  1. COSENTYX [Suspect]
     Active Substance: SECUKINUMAB
     Indication: Psoriasis
     Dosage: 300 MG, QMO (BENEATH THE SKIN, USUALLY VIA INJECTION)
     Route: 058
     Dates: start: 202105
  2. COSENTYX [Suspect]
     Active Substance: SECUKINUMAB
     Dosage: 300 MG
     Route: 058
     Dates: start: 202107

REACTIONS (4)
  - COVID-19 [Recovering/Resolving]
  - Pneumonia [Recovering/Resolving]
  - Scratch [Recovered/Resolved]
  - Melanocytic naevus [Not Recovered/Not Resolved]

NARRATIVE: CASE EVENT DATE: 20211001
